FAERS Safety Report 15163350 (Version 1)
Quarter: 2018Q3

REPORT INFORMATION
  Report Type: Spontaneous
  Country: US (occurrence: US)
  Receive Date: 20180719
  Receipt Date: 20180719
  Transmission Date: 20181010
  Serious: No
  Sender: FDA-Public Use
  Company Number: US-ELI_LILLY_AND_COMPANY-US201807000554

PATIENT
  Sex: Male

DRUGS (3)
  1. LANTUS [Concomitant]
     Active Substance: INSULIN GLARGINE
     Indication: PRODUCT USED FOR UNKNOWN INDICATION
  2. HUMALOG [Suspect]
     Active Substance: INSULIN LISPRO
     Indication: TYPE 2 DIABETES MELLITUS
     Dosage: 15?23 UNITS, TID
     Route: 058
     Dates: start: 1989
  3. HUMALOG [Suspect]
     Active Substance: INSULIN LISPRO
     Dosage: 15?23 UNITS, TID
     Route: 058

REACTIONS (5)
  - Injection site haemorrhage [Not Recovered/Not Resolved]
  - Product storage error [Recovered/Resolved]
  - Glycosylated haemoglobin increased [Unknown]
  - Injury associated with device [Unknown]
  - Injection site pain [Recovered/Resolved]
